FAERS Safety Report 17571402 (Version 1)
Quarter: 2020Q1

REPORT INFORMATION
  Report Type: Spontaneous
  Country: US (occurrence: US)
  Receive Date: 20200317
  Receipt Date: 20200317
  Transmission Date: 20200409
  Serious: Yes (Other)
  Sender: FDA-Public Use
  Company Number: None

PATIENT
  Age: 64 Year
  Sex: Female
  Weight: 77.11 kg

DRUGS (21)
  1. BABY ASPIRIN [Concomitant]
     Active Substance: ASPIRIN
  2. DICLOFENAC SODIUM. [Concomitant]
     Active Substance: DICLOFENAC SODIUM
  3. VIT B [Concomitant]
     Active Substance: VITAMIN B
  4. BIOTIN [Concomitant]
     Active Substance: BIOTIN
  5. XARELTO [Suspect]
     Active Substance: RIVAROXABAN
     Indication: PULMONARY THROMBOSIS
     Dosage: ?          QUANTITY:1 PILL;?
     Route: 048
     Dates: start: 20160729, end: 20170201
  6. MACULARPROTECT COMPLETE [Concomitant]
  7. VIT D [Concomitant]
     Active Substance: VITAMIN D NOS
  8. VITAMIN E [Concomitant]
     Active Substance: .ALPHA.-TOCOPHEROL
  9. LEVOTHYROXINE. [Concomitant]
     Active Substance: LEVOTHYROXINE
  10. SOD [Concomitant]
  11. PROP [Concomitant]
  12. CELEBREX [Concomitant]
     Active Substance: CELECOXIB
  13. SYSTANE ULTRA GEL [Concomitant]
  14. COUMADIN [Suspect]
     Active Substance: WARFARIN SODIUM
  15. OCUSOFT RETAINE [Concomitant]
  16. VITAMIN C [Concomitant]
     Active Substance: ASCORBIC ACID
  17. FISH OIL [Concomitant]
     Active Substance: FISH OIL
  18. RESTASIS [Concomitant]
     Active Substance: CYCLOSPORINE
  19. LIOTHYRONINE [Concomitant]
     Active Substance: LIOTHYRONINE
  20. FLUTICASONE. [Concomitant]
     Active Substance: FLUTICASONE
  21. CALCIUM [Concomitant]
     Active Substance: CALCIUM

REACTIONS (2)
  - Decreased appetite [None]
  - Euphoric mood [None]

NARRATIVE: CASE EVENT DATE: 20160812
